FAERS Safety Report 10151897 (Version 9)
Quarter: 2014Q4

REPORT INFORMATION
  Report Type: Report from Study
  Country: US (occurrence: None)
  Receive Date: 20140501
  Receipt Date: 20141205
  Transmission Date: 20150528
  Serious: Yes (Hospitalization, Other)
  Sender: FDA-Public Use
  Company Number: 2208793

PATIENT
  Age: 61 Year
  Sex: Female
  Weight: 74 kg

DRUGS (26)
  1. GEMCITABINE [Suspect]
     Active Substance: GEMCITABINE\GEMCITABINE HYDROCHLORIDE
     Indication: SARCOMA METASTATIC
     Dosage: 900 MG/M 2 MILLIGRAM(S)/SQ. METER (CYCLICAL), INTRAVENOUS DRIP
     Route: 041
     Dates: start: 20140203, end: 20140414
  2. DIPHENHYDRAMINE [Concomitant]
     Active Substance: DIPHENHYDRAMINE
  3. HYDROCHLOROTHIAZIDE. [Concomitant]
     Active Substance: HYDROCHLOROTHIAZIDE
  4. SERETIDE [Concomitant]
     Active Substance: FLUTICASONE FUROATE\SALMETEROL XINAFOATE
  5. FLUTICASONE PROPIONATE. [Concomitant]
     Active Substance: FLUTICASONE PROPIONATE
  6. PROCHLORPERAZINE EDISYLATE. [Concomitant]
     Active Substance: PROCHLORPERAZINE EDISYLATE
  7. FAMOTIDINE. [Concomitant]
     Active Substance: FAMOTIDINE
  8. FLUTICASONE PROPIONATE W/SALMETEROL [Concomitant]
     Active Substance: FLUTICASONE PROPIONATE\SALMETEROL XINAFOATE
  9. AMLODIPINE [Concomitant]
     Active Substance: AMLODIPINE BESYLATE
  10. FERROUS SULFATE [Concomitant]
     Active Substance: FERROUS SULFATE\FERROUS SULFATE, DRIED
  11. PETROLATUM. [Concomitant]
     Active Substance: PETROLATUM
  12. ONDANSETRON [Concomitant]
     Active Substance: ONDANSETRON
  13. DOCUSATE SODIUM. [Concomitant]
     Active Substance: DOCUSATE SODIUM
  14. LORAZEPAM. [Concomitant]
     Active Substance: LORAZEPAM
  15. FUROSEMIDE. [Concomitant]
     Active Substance: FUROSEMIDE
  16. GUAIFENESIN. [Concomitant]
     Active Substance: GUAIFENESIN
  17. SIMECO [Concomitant]
  18. DOCETAXEL. [Suspect]
     Active Substance: DOCETAXEL
     Indication: SARCOMA METASTATIC
     Dosage: 75 MG/M2 MILLIGRAM(S)/SQ. METER (CYCLICAL) ?INTRAVENOUS DRIP
     Route: 041
     Dates: start: 20140210, end: 20140414
  19. MACROGOL [Concomitant]
     Active Substance: POLYETHYLENE GLYCOLS
  20. SENNOSIDES A+B [Concomitant]
  21. PEGFILGRASTIM [Concomitant]
     Active Substance: PEGFILGRASTIM
  22. IBUPROFEN. [Concomitant]
     Active Substance: IBUPROFEN
  23. ACETAMINOPHEN. [Concomitant]
     Active Substance: ACETAMINOPHEN
  24. INVESTIGATIONAL DRUG [Suspect]
     Active Substance: INVESTIGATIONAL PRODUCT
     Indication: SARCOMA METASTATIC
     Dosage: 8 MG/KG MILLIGRAM(S)/KILOGRAM (CYCLICAL), INTRAVENOUS DRIP
     Route: 041
     Dates: start: 20140203, end: 20140414
  25. DEXAMETHASONE. [Concomitant]
     Active Substance: DEXAMETHASONE
  26. OXYCODONE [Concomitant]
     Active Substance: OXYCODONE

REACTIONS (48)
  - Tremor [None]
  - Leukopenia [None]
  - Myocardial infarction [None]
  - Pain [None]
  - Pleural effusion [None]
  - Pain in extremity [None]
  - Treatment noncompliance [None]
  - Syncope [None]
  - Hypotension [None]
  - Oesophagitis [None]
  - Cough [None]
  - Blood albumin decreased [None]
  - Blood calcium decreased [None]
  - Aspiration [None]
  - Erythema [None]
  - Hypertension [None]
  - Dehydration [None]
  - Productive cough [None]
  - QRS axis abnormal [None]
  - Electrocardiogram ST segment abnormal [None]
  - Electrocardiogram QT prolonged [None]
  - Blood alkaline phosphatase increased [None]
  - Pyrexia [None]
  - Neutropenia [None]
  - Oedema peripheral [None]
  - Chills [None]
  - Tachycardia [None]
  - Abdominal pain [None]
  - Haemoglobin decreased [None]
  - Feeding disorder [None]
  - Aspergillus test positive [None]
  - Infusion related reaction [None]
  - Diarrhoea [None]
  - Electrocardiogram T wave abnormal [None]
  - Bacterial test positive [None]
  - Asthenia [None]
  - Atelectasis [None]
  - Fatigue [None]
  - Platelet count decreased [None]
  - Influenza [None]
  - Condition aggravated [None]
  - Pneumonia [None]
  - Oropharyngeal pain [None]
  - Sinus tachycardia [None]
  - Haematocrit decreased [None]
  - Protein total decreased [None]
  - Drug dose omission [None]
  - Peripheral swelling [None]

NARRATIVE: CASE EVENT DATE: 20140203
